FAERS Safety Report 10010974 (Version 1)
Quarter: 2014Q1

REPORT INFORMATION
  Report Type: Report from Study
  Country: US (occurrence: US)
  Receive Date: 20140314
  Receipt Date: 20140314
  Transmission Date: 20141002
  Serious: Yes (Hospitalization, Other)
  Sender: FDA-Public Use
  Company Number: US-SA-2014SA032003

PATIENT
  Age: 75 Year
  Sex: Female

DRUGS (5)
  1. DRONEDARONE [Suspect]
     Indication: PRODUCT USED FOR UNKNOWN INDICATION
     Route: 065
  2. DABIGATRAN [Interacting]
     Indication: PRODUCT USED FOR UNKNOWN INDICATION
     Route: 065
  3. SOTALOL HYDROCHLORIDE [Concomitant]
  4. COUMADIN [Concomitant]
  5. AMIODARONE HYDROCHLORIDE [Concomitant]

REACTIONS (2)
  - Large intestinal haemorrhage [Unknown]
  - Drug interaction [Unknown]
